FAERS Safety Report 15061424 (Version 1)
Quarter: 2018Q2

REPORT INFORMATION
  Report Type: Spontaneous
  Country: US (occurrence: US)
  Receive Date: 20180625
  Receipt Date: 20180625
  Transmission Date: 20180711
  Serious: No
  Sender: FDA-Public Use
  Company Number: US-ROCHE-1988551

PATIENT
  Age: 81 Year
  Sex: Female

DRUGS (9)
  1. LISINOPRIL-HCT RATIOPHARM MITE [Concomitant]
     Dosage: 20-25 MG
     Route: 065
  2. XELODA [Suspect]
     Active Substance: CAPECITABINE
     Indication: BREAST CANCER FEMALE
     Dosage: 3 TABLETS (EACH TABLET: 500 MG), TWICE A DAY; 30 MINS AFTER BREAKFAST AND SUPPER- 14 DAYS ON AND 7 D
     Route: 048
     Dates: start: 20170823
  3. GLIMEPIRIDE. [Concomitant]
     Active Substance: GLIMEPIRIDE
     Route: 065
  4. ONDANSETRON [Concomitant]
     Active Substance: ONDANSETRON
     Route: 065
  5. DEXAMETHASON [Concomitant]
     Active Substance: DEXAMETHASONE
     Route: 065
  6. LORAZEPAM. [Concomitant]
     Active Substance: LORAZEPAM
     Route: 065
  7. VERAPAMIL HCL [Concomitant]
     Active Substance: VERAPAMIL HYDROCHLORIDE
     Route: 065
  8. GABAPENTIN. [Concomitant]
     Active Substance: GABAPENTIN
     Route: 065
  9. METFORMIN HYDROCHLORIDE. [Concomitant]
     Active Substance: METFORMIN HYDROCHLORIDE
     Route: 065

REACTIONS (2)
  - Nausea [Not Recovered/Not Resolved]
  - Dyspepsia [Not Recovered/Not Resolved]

NARRATIVE: CASE EVENT DATE: 20170823
